FAERS Safety Report 14425200 (Version 1)
Quarter: 2018Q1

REPORT INFORMATION
  Report Type: Spontaneous
  Country: US (occurrence: US)
  Receive Date: 20180123
  Receipt Date: 20180123
  Transmission Date: 20180509
  Serious: Yes (Death)
  Sender: FDA-Public Use
  Company Number: US-ORPHAN EUROPE-2040618

PATIENT
  Age: 14 Day
  Sex: Female

DRUGS (2)
  1. CARBAGLU [Suspect]
     Active Substance: CARGLUMIC ACID
     Indication: ACIDOSIS
  2. RIBOFLAVIN [Concomitant]
     Active Substance: RIBOFLAVIN

REACTIONS (2)
  - Death [Fatal]
  - Off label use [Recovered/Resolved]
